FAERS Safety Report 23227312 (Version 1)
Quarter: 2023Q4

REPORT INFORMATION
  Report Type: Spontaneous
  Country: CN (occurrence: CN)
  Receive Date: 20231124
  Receipt Date: 20231124
  Transmission Date: 20240110
  Serious: Yes (Other)
  Sender: FDA-Public Use
  Company Number: CN-PFIZER INC-PV202300189399

PATIENT
  Age: 71 Year
  Sex: Female
  Weight: 52 kg

DRUGS (4)
  1. CYTARABINE [Suspect]
     Active Substance: CYTARABINE
     Indication: Chronic myelomonocytic leukaemia
     Dosage: 12.5 MG, 2X/DAY
     Route: 041
     Dates: start: 20231022, end: 20231025
  2. DECITABINE [Suspect]
     Active Substance: DECITABINE
     Indication: Chronic myelomonocytic leukaemia
     Dosage: 25 MG, 1X/DAY
     Dates: start: 20231020, end: 20231022
  3. ACLARUBICIN HYDROCHLORIDE [Suspect]
     Active Substance: ACLARUBICIN HYDROCHLORIDE
     Indication: Chronic myelomonocytic leukaemia
     Dosage: 20 MG, ALTERNATE DAY
     Route: 041
     Dates: start: 20231022, end: 20231025
  4. OMACETAXINE MEPESUCCINATE [Suspect]
     Active Substance: OMACETAXINE MEPESUCCINATE
     Indication: Chronic myelomonocytic leukaemia
     Dosage: 1 MG, 1X/DAY
     Route: 041
     Dates: start: 20231022, end: 20231025

REACTIONS (4)
  - Asthenia [Recovering/Resolving]
  - Abdominal pain [Recovering/Resolving]
  - Platelet count decreased [Recovering/Resolving]
  - Listless [Unknown]

NARRATIVE: CASE EVENT DATE: 20231025
